FAERS Safety Report 14784832 (Version 1)
Quarter: 2018Q2

REPORT INFORMATION
  Report Type: Spontaneous
  Country: US (occurrence: US)
  Receive Date: 20180420
  Receipt Date: 20180420
  Transmission Date: 20180711
  Serious: No
  Sender: FDA-Public Use
  Company Number: US-ASCENT PHARMACEUTICALS, INC.-2046159

PATIENT
  Age: 53 Year
  Sex: Female
  Weight: 76.82 kg

DRUGS (20)
  1. CYCLOBENZAPRINE HYROCHLORIDE [Concomitant]
     Active Substance: CYCLOBENZAPRINE HYDROCHLORIDE
  2. CEPHALEXIN. [Concomitant]
     Active Substance: CEPHALEXIN
  3. MELOXICAM. [Concomitant]
     Active Substance: MELOXICAM
  4. OXYCONTIN [Concomitant]
     Active Substance: OXYCODONE HYDROCHLORIDE
  5. DIAZEPAM. [Concomitant]
     Active Substance: DIAZEPAM
  6. SUMATRIPTAN. [Concomitant]
     Active Substance: SUMATRIPTAN
  7. RELISTOR [Concomitant]
     Active Substance: METHYLNALTREXONE BROMIDE
  8. DICLOFENAC [Concomitant]
     Active Substance: DICLOFENAC
  9. PROAIR HFA [Concomitant]
     Active Substance: ALBUTEROL SULFATE
  10. MYRBETRIQ [Concomitant]
     Active Substance: MIRABEGRON
  11. ACYCLOVIR. [Concomitant]
     Active Substance: ACYCLOVIR
  12. OXYCODONE AND ACETAMINOPHEN [Suspect]
     Active Substance: ACETAMINOPHEN\OXYCODONE HYDROCHLORIDE
     Indication: SECONDARY PROGRESSIVE MULTIPLE SCLEROSIS
     Route: 048
     Dates: start: 20180112, end: 20180115
  13. PROPRANOLOL HYDROCHLORIDE. [Concomitant]
     Active Substance: PROPRANOLOL HYDROCHLORIDE
  14. LINZESS [Concomitant]
     Active Substance: LINACLOTIDE
  15. LISINOPRIL AND HYDROCHLORTHIAZIDE [Concomitant]
     Active Substance: HYDROCHLOROTHIAZIDE\LISINOPRIL
  16. TEMAZEPAM. [Concomitant]
     Active Substance: TEMAZEPAM
  17. MECLIZINE HCL 25 MG [Concomitant]
     Active Substance: MECLIZINE HYDROCHLORIDE
  18. ZOLPIDEM TARTRATE EXTENDED RELEASE [Concomitant]
     Active Substance: ZOLPIDEM TARTRATE
  19. BETAMETHASONE. [Concomitant]
     Active Substance: BETAMETHASONE
  20. VALACYCLOVIR [Concomitant]
     Active Substance: VALACYCLOVIR HYDROCHLORIDE

REACTIONS (1)
  - Drug ineffective [Unknown]
